FAERS Safety Report 12506512 (Version 4)
Quarter: 2017Q3

REPORT INFORMATION
  Report Type: Report from Study
  Country: CA (occurrence: CA)
  Receive Date: 20160628
  Receipt Date: 20170728
  Transmission Date: 20171127
  Serious: Yes (Hospitalization, Other)
  Sender: FDA-Public Use
  Company Number: CA-TAKEDA-2016TUS010398

PATIENT
  Age: 61 Year
  Sex: Male

DRUGS (5)
  1. ZYTRAM [Concomitant]
     Active Substance: TRAMADOL HYDROCHLORIDE
     Dosage: UNK
  2. CODEIN [Concomitant]
     Active Substance: CODEINE
     Dosage: UNK, TID
  3. CLONAZEPAM. [Concomitant]
     Active Substance: CLONAZEPAM
     Dosage: UNK
     Dates: start: 2015
  4. TYLENOL WITH CODEIN 3 [Concomitant]
     Dosage: UNK, QD
  5. VEDOLIZUMAB [Suspect]
     Active Substance: VEDOLIZUMAB
     Indication: COLITIS ULCERATIVE
     Dosage: 300 MG, Q4WEEKS
     Route: 042
     Dates: start: 20160810

REACTIONS (5)
  - Colitis ulcerative [Not Recovered/Not Resolved]
  - White blood cell count increased [Unknown]
  - Off label use [Unknown]
  - Haemoglobin decreased [Unknown]
  - Muscle injury [Unknown]

NARRATIVE: CASE EVENT DATE: 2016
